FAERS Safety Report 8021220-3 (Version None)
Quarter: 2011Q4

REPORT INFORMATION
  Report Type: 
  Country: None (occurrence: None)
  Receive Date: 20111230
  Receipt Date: 20111230
  Transmission Date: 20120403
  Serious: Yes (Hospitalization)
  Sender: FDA-Public Use
  Company Number: None

PATIENT
  Sex: Male
  Weight: 144.4 kg

DRUGS (5)
  1. LISINOPRIL AND HYDROCHLOROTHIAZIDE [Concomitant]
  2. LEUCOVORIN CALCIUM [Suspect]
     Dosage: 4256 MG
     Dates: end: 20111214
  3. ELOXATIN [Suspect]
     Dosage: 692MG
     Dates: end: 20111214
  4. BEVACIZUMAB (RHUMAB VEGF) [Suspect]
     Dosage: 2956 MG
     Dates: end: 20111214
  5. FLUOROURACIL [Suspect]
     Dosage: 23832 MG
     Dates: end: 20111216

REACTIONS (5)
  - NAUSEA [None]
  - SYNCOPE [None]
  - DIZZINESS [None]
  - HYPERHIDROSIS [None]
  - DEHYDRATION [None]
